FAERS Safety Report 6585816-8 (Version None)
Quarter: 2010Q1

REPORT INFORMATION
  Report Type: 
  Country: None (occurrence: None)
  Receive Date: 20100217
  Receipt Date: 20100207
  Transmission Date: 20100710
  Serious: Yes (Hospitalization, Other)
  Sender: FDA-Public Use
  Company Number: US-ROCHE-678952

PATIENT
  Sex: Male
  Weight: 99.8 kg

DRUGS (9)
  1. PEG-INTERFERON A-2A (RO 25-8310) [Suspect]
     Indication: HEPATITIS C
     Route: 058
     Dates: start: 20091030, end: 20091111
  2. PEG-INTERFERON A-2A (RO 25-8310) [Suspect]
     Route: 058
     Dates: start: 20100104
  3. RIBAVIRIN [Suspect]
     Indication: HEPATITIS C
     Route: 048
     Dates: start: 20091030, end: 20091111
  4. RIBAVIRIN [Suspect]
     Route: 048
     Dates: start: 20100104
  5. PROGRAF [Concomitant]
  6. PREVACID [Concomitant]
  7. BACTRIM [Concomitant]
  8. ZOFRAN [Concomitant]
  9. VALCYTE [Concomitant]

REACTIONS (10)
  - ASTHENIA [None]
  - HAEMATOCRIT DECREASED [None]
  - HAEMOGLOBIN DECREASED [None]
  - INFLUENZA LIKE ILLNESS [None]
  - LEUKOPENIA [None]
  - NEPHROLITHIASIS [None]
  - PAIN [None]
  - POLYURIA [None]
  - RENAL FAILURE [None]
  - WEIGHT DECREASED [None]
